FAERS Safety Report 13582661 (Version 1)
Quarter: 2017Q2

REPORT INFORMATION
  Report Type: Spontaneous
  Country: ES (occurrence: ES)
  Receive Date: 20170525
  Receipt Date: 20170525
  Transmission Date: 20170830
  Serious: Yes (Other)
  Sender: FDA-Public Use
  Company Number: ES-MYLANLABS-2017M1031474

PATIENT

DRUGS (6)
  1. HYDROXYCHLOROQUINE [Suspect]
     Active Substance: HYDROXYCHLOROQUINE
     Indication: MULTICENTRIC RETICULOHISTIOCYTOSIS
     Route: 065
  2. METHOTREXATE. [Suspect]
     Active Substance: METHOTREXATE
     Dosage: 20MG/WEEK
     Route: 065
  3. PREDNISONE. [Concomitant]
     Active Substance: PREDNISONE
     Dosage: 30MG/DAY
     Route: 065
     Dates: start: 201106
  4. PREDNISONE. [Concomitant]
     Active Substance: PREDNISONE
     Indication: MULTICENTRIC RETICULOHISTIOCYTOSIS
     Dosage: 20MG/DAY AND INCREASED
     Route: 065
  5. ALENDRONIC ACID [Concomitant]
     Active Substance: ALENDRONIC ACID
     Indication: MULTICENTRIC RETICULOHISTIOCYTOSIS
     Dosage: 70MG/WEEK
     Route: 065
  6. METHOTREXATE. [Suspect]
     Active Substance: METHOTREXATE
     Indication: MULTICENTRIC RETICULOHISTIOCYTOSIS
     Dosage: 25MG/WEEK AND THEN REDUCED
     Route: 065

REACTIONS (1)
  - Drug ineffective [Unknown]
